FAERS Safety Report 6048362-6 (Version None)
Quarter: 2009Q1

REPORT INFORMATION
  Report Type: 
  Country: None (occurrence: None)
  Receive Date: 20090123
  Receipt Date: 20090116
  Transmission Date: 20090719
  Serious: Yes (Hospitalization, Other)
  Sender: FDA-Public Use
  Company Number: PH-ABBOTT-09P-128-0498570-00

PATIENT
  Age: 60 Year
  Sex: Male

DRUGS (1)
  1. TERAZOSIN TABLETS (HYTRIN) [Suspect]
     Indication: BENIGN PROSTATIC HYPERPLASIA
     Route: 048

REACTIONS (1)
  - MYOCARDIAL INFARCTION [None]
